FAERS Safety Report 4464207-X (Version None)
Quarter: 2004Q4

REPORT INFORMATION
  Report Type: 
  Country: None (occurrence: None)
  Receive Date: 20041001
  Receipt Date: 19990622
  Transmission Date: 20050328
  Serious: No
  Sender: FDA-Public Use
  Company Number: JP-GLAXOSMITHKLINE-B0068080A

PATIENT
  Age: 54 Year
  Sex: Female
  Weight: 147 kg

DRUGS (14)
  1. ACYCLOVIR [Suspect]
     Indication: HERPES ZOSTER
     Route: 048
     Dates: start: 19980715, end: 19980722
  2. TRIAZOLAM [Suspect]
     Indication: INSOMNIA
     Route: 048
  3. HAEMODIALYSIS [Concomitant]
  4. URSODEOXYCHOLIC ACID [Concomitant]
     Dosage: 150MG PER DAY
     Route: 048
  5. CHLORPHENIRAMINE MALEATE [Concomitant]
     Dosage: 6MG PER DAY
     Route: 048
     Dates: start: 19980520
  6. ALLOPURINOL [Concomitant]
     Dosage: 50MG THREE TIMES PER WEEK
     Route: 048
     Dates: start: 19980513
  7. CALCIUM CARBONATE [Concomitant]
     Indication: HYPERCHLORHYDRIA
     Route: 048
  8. DIGOXIN [Concomitant]
     Indication: ATRIAL FIBRILLATION
     Dosage: .125MG ALTERNATE DAYS
     Route: 048
     Dates: start: 19980421
  9. AMEZINIUM METILSULFATE [Concomitant]
     Indication: BLOOD PRESSURE DECREASED
     Dosage: 20MG PER DAY
     Route: 048
     Dates: start: 19980618
  10. DROXIDOPA [Concomitant]
     Indication: BLOOD PRESSURE DECREASED
     Route: 048
     Dates: start: 19980618
  11. LANSOPRAZOLE [Concomitant]
     Indication: GASTRIC ULCER
     Dosage: 30MG PER DAY
     Route: 048
     Dates: start: 19980710
  12. EPOGEN [Concomitant]
     Dosage: 3000IU THREE TIMES PER WEEK
     Route: 042
     Dates: start: 19980425
  13. CHONDROITIN SULPHATE [Concomitant]
     Indication: IRON DEFICIENCY
     Route: 048
     Dates: start: 19980629
  14. VIDARABINE [Concomitant]
     Route: 065
     Dates: start: 19980714

REACTIONS (9)
  - ABNORMAL BEHAVIOUR [None]
  - CONFUSIONAL STATE [None]
  - DIZZINESS [None]
  - DYSARTHRIA [None]
  - INSOMNIA [None]
  - NEUROSIS [None]
  - PAIN [None]
  - PYREXIA [None]
  - SOMNOLENCE [None]
